FAERS Safety Report 10327997 (Version 2)
Quarter: 2014Q3

REPORT INFORMATION
  Report Type: Not Available
  Country: FR (occurrence: FR)
  Receive Date: 20140721
  Receipt Date: 20140918
  Transmission Date: 20150326
  Serious: Yes (Hospitalization, Other)
  Sender: FDA-Public Use
  Company Number: FR-BEH-2014043817

PATIENT
  Age: 79 Year
  Sex: Male

DRUGS (7)
  1. PRIVIGEN [Suspect]
     Active Substance: HUMAN IMMUNOGLOBULIN G
     Route: 042
     Dates: start: 20140327
  2. PRIVIGEN [Suspect]
     Active Substance: HUMAN IMMUNOGLOBULIN G
     Route: 042
     Dates: start: 20140227
  3. VALIUM [Suspect]
     Active Substance: DIAZEPAM
     Dates: start: 20140522
  4. PRIVIGEN [Suspect]
     Active Substance: HUMAN IMMUNOGLOBULIN G
     Dosage: 30 G ON 25/04/2014 (A VIAL OF 20 G LOT 4326300077 AND A VIAL OF 10 G LOT 4326200046)
     Route: 042
     Dates: start: 20140425
  5. PRIVIGEN [Suspect]
     Active Substance: HUMAN IMMUNOGLOBULIN G
     Indication: CHRONIC LYMPHOCYTIC LEUKAEMIA
     Dosage: 30 G ON 25/04/2014 (A VIAL OF 20 G LOT 4326300077 AND A VIAL OF 10 G LOT 4326200046)
     Route: 042
     Dates: start: 20140425
  6. CORTICOSTEROIDS [Suspect]
     Active Substance: CORTICOSTEROID NOS
     Dates: start: 20140522
  7. PRIVIGEN [Suspect]
     Active Substance: HUMAN IMMUNOGLOBULIN G
     Route: 042
     Dates: start: 20140522

REACTIONS (5)
  - Similar reaction on previous exposure to drug [Unknown]
  - Pyrexia [Unknown]
  - Noninfective encephalitis [Unknown]
  - Confusional state [Recovered/Resolved]
  - Chills [Unknown]

NARRATIVE: CASE EVENT DATE: 20140522
